FAERS Safety Report 7196427-8 (Version None)
Quarter: 2010Q4

REPORT INFORMATION
  Report Type: 
  Country: None (occurrence: None)
  Receive Date: 20101223
  Receipt Date: 20101025
  Transmission Date: 20110411
  Serious: No
  Sender: FDA-Public Use
  Company Number: US-AMGEN-USASP2010002879

PATIENT

DRUGS (6)
  1. ENBREL [Suspect]
     Indication: PRODUCT USED FOR UNKNOWN INDICATION
     Dosage: 50 MG, Q2WK
  2. ENBREL [Suspect]
  3. HYDROCHLOROTH [Concomitant]
     Dosage: 25 MG, UNK
  4. IBUPROFEN [Concomitant]
  5. MULTI-VITAMINS [Concomitant]
  6. BYSTOLIC [Concomitant]

REACTIONS (1)
  - NASOPHARYNGITIS [None]
